FAERS Safety Report 6308605-8 (Version None)
Quarter: 2009Q3

REPORT INFORMATION
  Report Type: 
  Country: None (occurrence: None)
  Receive Date: 20090813
  Receipt Date: 20090811
  Transmission Date: 20100115
  Serious: Yes (Death)
  Sender: FDA-Public Use
  Company Number: PHEH2007US16328

PATIENT
  Sex: Female

DRUGS (1)
  1. GLEEVEC [Suspect]
     Dosage: 600 MG DAILY
     Dates: start: 20040824, end: 20070801

REACTIONS (2)
  - DEATH [None]
  - RAYNAUD'S PHENOMENON [None]
